FAERS Safety Report 4589364-6 (Version None)
Quarter: 2005Q1

REPORT INFORMATION
  Report Type: 
  Country: None (occurrence: None)
  Receive Date: 20050216
  Receipt Date: 20050131
  Transmission Date: 20050727
  Serious: Yes (Death)
  Sender: FDA-Public Use
  Company Number: B0349818A

PATIENT
  Age: 20 Year
  Sex: Female
  Weight: 78.0187 kg

DRUGS (4)
  1. WELLBUTRIN [Suspect]
     Dosage: ORAL
     Route: 048
  2. VALPROIC ACID [Concomitant]
     Dosage: ORAL
     Route: 048
  3. TOPIRAMATE [Suspect]
     Dosage: ORAL
     Route: 048
  4. CLONIDINE [Suspect]
     Dosage: ORAL
     Route: 048

REACTIONS (10)
  - ACIDOSIS [None]
  - BLOOD PH INCREASED [None]
  - BRAIN OEDEMA [None]
  - COMA [None]
  - COMPLETED SUICIDE [None]
  - CONVULSION [None]
  - HEART RATE DECREASED [None]
  - HYPOTENSION [None]
  - MULTIPLE DRUG OVERDOSE [None]
  - TACHYCARDIA [None]
